FAERS Safety Report 7281061-1 (Version None)
Quarter: 2011Q1

REPORT INFORMATION
  Report Type: 
  Country: None (occurrence: None)
  Receive Date: 20110208
  Receipt Date: 20110204
  Transmission Date: 20110831
  Serious: Yes (Other)
  Sender: FDA-Public Use
  Company Number: FR-MERCK-1012FRA00127

PATIENT
  Age: 78 Year
  Sex: Female

DRUGS (12)
  1. PREDNISONE [Suspect]
     Indication: DERMATOMYOSITIS
     Route: 048
     Dates: start: 20090701
  2. HYDROXYCHLOROQUINE SULFATE [Suspect]
     Route: 048
     Dates: start: 20101203
  3. FOSAMAX [Suspect]
     Route: 048
     Dates: start: 20090101
  4. ESCITALOPRAM OXALATE [Suspect]
     Indication: DEPRESSION
     Route: 048
  5. LETROZOLE [Suspect]
     Indication: BREAST CANCER
     Route: 048
  6. CALCIUM CARBONATE AND CHOLECALCIFEROL [Suspect]
     Route: 048
     Dates: start: 20090801
  7. FOLIC ACID [Suspect]
     Route: 048
  8. HYDROXYCHLOROQUINE SULFATE [Suspect]
     Indication: DERMATOMYOSITIS
     Route: 048
     Dates: start: 20090501, end: 20101001
  9. VALACYCLOVIR HYDROCHLORIDE [Suspect]
     Route: 048
  10. METHOTREXATE SODIUM [Suspect]
     Indication: DERMATOMYOSITIS
     Route: 051
  11. PANTOPRAZOLE SODIUM [Suspect]
     Route: 048
     Dates: start: 20090101
  12. IRBESARTAN [Suspect]
     Indication: HYPERTENSION
     Route: 048

REACTIONS (1)
  - CATARACT [None]
